FAERS Safety Report 14563702 (Version 1)
Quarter: 2018Q1

REPORT INFORMATION
  Report Type: Spontaneous
  Country: JP (occurrence: JP)
  Receive Date: 20180222
  Receipt Date: 20180222
  Transmission Date: 20180509
  Serious: Yes (Hospitalization)
  Sender: FDA-Public Use
  Company Number: JP-SA-2017SA198308

PATIENT
  Age: 61 Year
  Sex: Male
  Weight: 83 kg

DRUGS (11)
  1. GRANISETRON [Concomitant]
     Active Substance: GRANISETRON
     Indication: PREMEDICATION
     Route: 065
     Dates: start: 20170817, end: 20170921
  2. ZALTRAP [Suspect]
     Active Substance: ZIV-AFLIBERCEPT
     Indication: COLON CANCER
     Dosage: EVERY 2-3 WEEKS
     Route: 042
     Dates: start: 20170817, end: 20170817
  3. CAMPTO [Suspect]
     Active Substance: IRINOTECAN
     Indication: COLON CANCER
     Dosage: EVERY 2-3 WEEKS:FREQUENCY ?DOSE :200-280 MG/BODY
     Route: 042
     Dates: start: 20170921, end: 20170921
  4. DEXART [Concomitant]
     Active Substance: DEXAMETHASONE SODIUM PHOSPHATE
     Indication: PREMEDICATION
     Route: 065
     Dates: start: 20170817, end: 20170921
  5. ZALTRAP [Suspect]
     Active Substance: ZIV-AFLIBERCEPT
     Indication: COLON CANCER
     Dosage: EVERY 2-3 WEEKS
     Route: 042
     Dates: start: 20170921, end: 20170921
  6. EMEND [Concomitant]
     Active Substance: APREPITANT
     Indication: PREMEDICATION
     Route: 048
     Dates: start: 20170817, end: 20170921
  7. FLUOROURACIL. [Suspect]
     Active Substance: FLUOROURACIL
     Indication: COLON CANCER
     Dosage: DOSE :4000-4500 MG OVER 2 DAYS,FREQUENCY : EVERY 2-3 WEEKS
     Route: 042
     Dates: start: 20170921, end: 20170921
  8. FLUOROURACIL. [Suspect]
     Active Substance: FLUOROURACIL
     Indication: COLON CANCER
     Dosage: DOSE :4000-4500 MG OVER 2 DAYS,FREQUENCY : EVERY 2-3 WEEKS
     Route: 042
     Dates: start: 20170817, end: 20170817
  9. CALCIUM LEVOFOLINATE [Concomitant]
     Active Substance: LEVOLEUCOVORIN CALCIUM
     Indication: COLON CANCER
     Dosage: FREQUENCY : EVERY 2-3 WEEKS
     Route: 042
     Dates: start: 20170817, end: 20170817
  10. CAMPTO [Suspect]
     Active Substance: IRINOTECAN
     Indication: COLON CANCER
     Dosage: EVERY 2-3 WEEKS:FREQUENCY ?DOSE :200-280 MG/BODY
     Route: 042
     Dates: start: 20170817, end: 20170817
  11. CALCIUM LEVOFOLINATE [Concomitant]
     Active Substance: LEVOLEUCOVORIN CALCIUM
     Indication: COLON CANCER
     Dosage: EVERY 2-3 WEEKS
     Route: 042
     Dates: start: 20170921, end: 20170921

REACTIONS (3)
  - Diarrhoea [Recovered/Resolved]
  - Malaise [Recovered/Resolved]
  - Bacteraemia [Recovering/Resolving]

NARRATIVE: CASE EVENT DATE: 20171005
